FAERS Safety Report 7319758-7 (Version None)
Quarter: 2011Q1

REPORT INFORMATION
  Report Type: 
  Country: None (occurrence: None)
  Receive Date: 20110228
  Receipt Date: 20100909
  Transmission Date: 20110831
  Serious: No
  Sender: FDA-Public Use
  Company Number: A0880516A

PATIENT
  Age: 44 Year
  Sex: Female

DRUGS (2)
  1. LAMICTAL [Suspect]
     Indication: BIPOLAR DISORDER
     Dosage: 150MG PER DAY
     Route: 048
     Dates: start: 20100902, end: 20100909
  2. NO CONCURRENT MEDICATION [Concomitant]

REACTIONS (2)
  - PYREXIA [None]
  - RASH [None]
